FAERS Safety Report 5124517-X (Version None)
Quarter: 2006Q3

REPORT INFORMATION
  Report Type: 
  Country: None (occurrence: None)
  Receive Date: 20060821
  Receipt Date: 20060626
  Transmission Date: 20061208
  Serious: No
  Sender: FDA-Public Use
  Company Number: TPA2006A00853

PATIENT
  Age: 58 Year
  Sex: Female

DRUGS (8)
  1. ROZEREM [Suspect]
     Indication: INSOMNIA
     Dosage: 8 MG, PER ORAL
     Route: 048
     Dates: start: 20060306, end: 20060424
  2. REQUIP [Concomitant]
  3. SOMA [Concomitant]
  4. HYDROCODONE (HYDROCODONE) [Concomitant]
  5. CYMBALTA [Concomitant]
  6. MIRAPEX (PRAMIPEXOLE) (0.5 MILLIGRAM) [Concomitant]
  7. TRAZODONE (TRAZODONE) (100 MILLIGRAM) [Concomitant]
  8. KLONOPIN (CLONAZEPAM) (0.5 MILLIGRAM) [Concomitant]

REACTIONS (2)
  - CONDITION AGGRAVATED [None]
  - RESTLESS LEGS SYNDROME [None]
